FAERS Safety Report 6839435-6 (Version None)
Quarter: 2010Q3

REPORT INFORMATION
  Report Type: 
  Country: None (occurrence: None)
  Receive Date: 20100714
  Receipt Date: 20091027
  Transmission Date: 20110219
  Serious: No
  Sender: FDA-Public Use
  Company Number: A0678458A

PATIENT
  Age: 44 Year
  Sex: Female

DRUGS (5)
  1. FLOVENT [Suspect]
     Indication: ASTHMA
     Dosage: 1PUFF PER DAY
     Route: 055
     Dates: start: 20091025
  2. ADVAIR DISKUS 100/50 [Suspect]
     Indication: ASTHMA
     Route: 055
     Dates: start: 20070101, end: 20091024
  3. XANAX [Concomitant]
  4. VITAMINS [Concomitant]
  5. ASMANEX TWISTHALER [Concomitant]
     Indication: ASTHMA
     Dates: end: 20091024

REACTIONS (3)
  - GASTROINTESTINAL PAIN [None]
  - HEPATITIS C [None]
  - OVARIAN CYST [None]
